FAERS Safety Report 7711791-6 (Version None)
Quarter: 2011Q3

REPORT INFORMATION
  Report Type: 
  Country: None (occurrence: None)
  Receive Date: 20110826
  Receipt Date: 20110815
  Transmission Date: 20111222
  Serious: No
  Sender: FDA-Public Use
  Company Number: US-B.I. PHARMACEUTICALS,INC./RIDGEFIELD-2011-BP-19993BP

PATIENT
  Age: 82 Year
  Sex: Male

DRUGS (6)
  1. ADVAIR DISKUS 100/50 [Concomitant]
     Indication: CHRONIC OBSTRUCTIVE PULMONARY DISEASE
     Dates: start: 20100101
  2. XOPENEX [Concomitant]
     Indication: CHRONIC OBSTRUCTIVE PULMONARY DISEASE
     Dates: start: 20100101
  3. LOPRESSOR [Concomitant]
     Indication: HYPERTENSION
     Dates: start: 19800101
  4. PRADAXA [Suspect]
     Indication: ATRIAL FIBRILLATION
     Dosage: 300 MG
     Route: 048
     Dates: start: 20110701
  5. TRUSOPT [Concomitant]
     Indication: GLAUCOMA
     Dates: start: 19800101
  6. XALATAN [Concomitant]
     Indication: GLAUCOMA
     Dates: start: 19800101

REACTIONS (2)
  - FATIGUE [None]
  - FLUSHING [None]
